FAERS Safety Report 9992599 (Version 1)
Quarter: 2014Q1

REPORT INFORMATION
  Report Type: Spontaneous
  Country: US (occurrence: US)
  Receive Date: 20140310
  Receipt Date: 20140310
  Transmission Date: 20141002
  Serious: Yes (Other)
  Sender: FDA-Public Use
  Company Number: US-WATSON-2014-03736

PATIENT
  Age: 58 Year
  Sex: Female

DRUGS (2)
  1. HYDROXYCHLOROQUINE SULFATE (WATSON LABORATORIES) [Suspect]
     Indication: MIXED CONNECTIVE TISSUE DISEASE
     Dosage: 400 MG, DAILY
     Route: 065
  2. PREDNISONE [Concomitant]
     Indication: MIXED CONNECTIVE TISSUE DISEASE
     Dosage: VARYING DOSES,UNK
     Route: 065

REACTIONS (1)
  - Myopathy toxic [Recovering/Resolving]
